FAERS Safety Report 13688308 (Version 1)
Quarter: 2017Q2

REPORT INFORMATION
  Report Type: Spontaneous
  Country: TW (occurrence: TW)
  Receive Date: 20170626
  Receipt Date: 20170626
  Transmission Date: 20170830
  Serious: Yes (Other)
  Sender: FDA-Public Use
  Company Number: TW-MACLEODS PHARMACEUTICALS US LTD-MAC2017005279

PATIENT

DRUGS (7)
  1. RIVASTIGMINE. [Suspect]
     Active Substance: RIVASTIGMINE
     Dosage: 4.5 MG, BID
     Route: 065
  2. RIVASTIGMINE. [Suspect]
     Active Substance: RIVASTIGMINE
     Dosage: 4.5 MG, QD
     Route: 065
  3. RIVASTIGMINE. [Suspect]
     Active Substance: RIVASTIGMINE
     Dosage: 4.5 MG, BID
     Route: 065
  4. RIVASTIGMINE. [Suspect]
     Active Substance: RIVASTIGMINE
     Indication: DEMENTIA ALZHEIMER^S TYPE
     Dosage: 1.5 MG, BID
     Route: 065
  5. RIVASTIGMINE. [Suspect]
     Active Substance: RIVASTIGMINE
     Dosage: 6.75 MG, QD
     Route: 065
  6. RIVASTIGMINE. [Suspect]
     Active Substance: RIVASTIGMINE
     Dosage: 3 MG, BID
     Route: 065
  7. RIVASTIGMINE. [Suspect]
     Active Substance: RIVASTIGMINE
     Dosage: 4.5 MG, QD
     Route: 065

REACTIONS (5)
  - Pleurothotonus [Recovered/Resolved]
  - Paraesthesia [Recovered/Resolved]
  - Posture abnormal [Recovered/Resolved]
  - Tremor [Recovered/Resolved]
  - Dyskinesia [Recovered/Resolved]
